FAERS Safety Report 23361799 (Version 2)
Quarter: 2024Q1

REPORT INFORMATION
  Report Type: Spontaneous
  Country: CH (occurrence: None)
  Receive Date: 20240103
  Receipt Date: 20240112
  Transmission Date: 20240410
  Serious: Yes (Hospitalization)
  Sender: FDA-Public Use
  Company Number: CH-ROCHE-3483831

PATIENT
  Sex: Male
  Weight: 67 kg

DRUGS (2)
  1. ATEZOLIZUMAB [Suspect]
     Active Substance: ATEZOLIZUMAB
     Indication: Hepatocellular carcinoma
     Route: 065
     Dates: start: 20230915
  2. BEVACIZUMAB [Suspect]
     Active Substance: BEVACIZUMAB
     Indication: Hepatocellular carcinoma
     Route: 065

REACTIONS (6)
  - General physical health deterioration [Unknown]
  - Weight decreased [Unknown]
  - Dyspnoea [Unknown]
  - Hepatitis [Unknown]
  - Myocarditis [Unknown]
  - Haemophagocytic lymphohistiocytosis [Unknown]
